FAERS Safety Report 17021750 (Version 1)
Quarter: 2019Q4

REPORT INFORMATION
  Report Type: Spontaneous
  Country: SE (occurrence: SE)
  Receive Date: 20191112
  Receipt Date: 20191112
  Transmission Date: 20200122
  Serious: Yes (Hospitalization, Other)
  Sender: FDA-Public Use
  Company Number: SE-PFIZER INC-2019487989

PATIENT
  Age: 74 Year
  Sex: Female

DRUGS (4)
  1. FOLACIN [FOLIC ACID] [Concomitant]
     Active Substance: FOLIC ACID
     Dosage: UNK
  2. METHOTREXATE SODIUM. [Suspect]
     Active Substance: METHOTREXATE SODIUM
     Indication: NEURODERMATITIS
     Dosage: UNK
     Dates: end: 20190927
  3. ELIQUIS [Concomitant]
     Active Substance: APIXABAN
     Dosage: UNK
  4. QUETIAPINE. [Concomitant]
     Active Substance: QUETIAPINE
     Dosage: UNK

REACTIONS (5)
  - Anaemia [Unknown]
  - Product use in unapproved indication [Unknown]
  - Thrombocytopenia [Unknown]
  - Off label use [Unknown]
  - Blood folate decreased [Unknown]

NARRATIVE: CASE EVENT DATE: 20190927
